FAERS Safety Report 20633353 (Version 1)
Quarter: 2022Q1

REPORT INFORMATION
  Report Type: Spontaneous
  Country: IN (occurrence: IN)
  Receive Date: 20220324
  Receipt Date: 20220324
  Transmission Date: 20220423
  Serious: Yes (Hospitalization, Other)
  Sender: FDA-Public Use
  Company Number: IN-NOVARTISPH-NVSC2022IN066538

PATIENT
  Age: 60 Year
  Sex: Female

DRUGS (4)
  1. DICLOFENAC [Suspect]
     Active Substance: DICLOFENAC
     Indication: Pyrexia
     Dosage: UNK
     Route: 065
     Dates: start: 2021, end: 2021
  2. DICLOFENAC [Suspect]
     Active Substance: DICLOFENAC
     Indication: Oropharyngeal pain
  3. ACETAMINOPHEN [Concomitant]
     Active Substance: ACETAMINOPHEN
     Indication: Pyrexia
     Dosage: UNK
     Route: 065
     Dates: start: 2021, end: 2021
  4. ACETAMINOPHEN [Concomitant]
     Active Substance: ACETAMINOPHEN
     Indication: Oropharyngeal pain

REACTIONS (19)
  - Toxic epidermal necrolysis [Unknown]
  - Rash [Unknown]
  - Oral mucosa erosion [Unknown]
  - Lip haemorrhage [Unknown]
  - Lip scab [Unknown]
  - Macule [Unknown]
  - Vulvar erosion [Unknown]
  - Conjunctival erosion [Unknown]
  - Segmented hyalinising vasculitis [Unknown]
  - Nasal mucosal erosion [Unknown]
  - Eye discharge [Unknown]
  - Otorrhoea [Unknown]
  - Skin disorder [Unknown]
  - Skin erosion [Unknown]
  - Erythema [Unknown]
  - Skin exfoliation [Unknown]
  - Purpura [Unknown]
  - Leukocytosis [Unknown]
  - Hypoproteinaemia [Unknown]

NARRATIVE: CASE EVENT DATE: 20210101
